FAERS Safety Report 9646604 (Version 2)
Quarter: 2013Q4

REPORT INFORMATION
  Report Type: Spontaneous
  Country: US (occurrence: US)
  Receive Date: 20131026
  Receipt Date: 20131219
  Transmission Date: 20140711
  Serious: Yes (Hospitalization)
  Sender: FDA-Public Use
  Company Number: US-AMGEN-USASP2013074448

PATIENT
  Age: 73 Year
  Sex: Female

DRUGS (11)
  1. PROLIA [Suspect]
     Indication: PRODUCT USED FOR UNKNOWN INDICATION
     Dosage: 60 MG/ML, Q6MO
     Route: 065
  2. TRAMADOL [Concomitant]
     Dosage: 50 MG, UNK
     Route: 048
  3. ASPIRIN [Concomitant]
     Dosage: 325 MG, Q6H
     Route: 048
  4. LORTAB                             /00607101/ [Concomitant]
     Indication: PAIN
     Dosage: 500 MG, UNK
     Route: 048
  5. BENICAR [Concomitant]
     Dosage: 40 MG, QD
     Route: 048
  6. POTASSIUM CHLORIDE [Concomitant]
     Dosage: 20 MEQ, QD
     Route: 048
  7. LASIX                              /00032601/ [Concomitant]
     Dosage: 40 MG, QD
  8. SIMVASTATIN [Concomitant]
     Dosage: 20 MG, QD
     Route: 048
  9. SYNTHROID [Concomitant]
     Dosage: 50 MUG, QD
     Route: 048
  10. CELEXA                             /00582602/ [Concomitant]
     Dosage: 20 MG, QD
     Route: 048
  11. VITAMIN D                          /00107901/ [Concomitant]
     Dosage: 50000 IU, 2 TIMES/WK

REACTIONS (12)
  - Hypocalcaemia [Unknown]
  - Sinusitis [Unknown]
  - Pharyngitis streptococcal [Unknown]
  - Respiratory tract infection [Unknown]
  - Lip swelling [Unknown]
  - Nausea [Unknown]
  - Dysphonia [Unknown]
  - Joint stiffness [Unknown]
  - Pain [Unknown]
  - Anxiety [Unknown]
  - Dehydration [Unknown]
  - Lymphadenopathy [Unknown]
